FAERS Safety Report 5138358-0 (Version None)
Quarter: 2006Q4

REPORT INFORMATION
  Report Type: 
  Country: None (occurrence: None)
  Receive Date: 20061030
  Receipt Date: 20061010
  Transmission Date: 20070319
  Serious: Yes (Hospitalization, Other)
  Sender: FDA-Public Use
  Company Number: US-AMGEN-US196271

PATIENT
  Sex: Female
  Weight: 81.1 kg

DRUGS (39)
  1. ARANESP [Suspect]
     Indication: ANAEMIA OF MALIGNANT DISEASE
     Route: 058
     Dates: start: 20060124, end: 20060928
  2. ACYCLOVIR [Concomitant]
     Route: 048
  3. PREMARIN [Concomitant]
     Route: 048
  4. PENTAMIDINE ISETHIONATE [Concomitant]
     Route: 055
  5. PENICILLIN VK [Concomitant]
     Route: 048
     Dates: end: 20060213
  6. COUMADIN [Concomitant]
     Route: 048
  7. OSCAL [Concomitant]
     Route: 048
  8. BUDESONIDE [Concomitant]
     Route: 048
     Dates: end: 20060209
  9. TACROLIMUS [Concomitant]
     Route: 048
  10. BACTRIM [Concomitant]
  11. AMPHOTERICIN B [Concomitant]
     Dates: end: 20060130
  12. NYSTATIN [Concomitant]
  13. ATENOLOL [Concomitant]
     Route: 048
  14. PREVACID [Concomitant]
     Route: 048
  15. MAGNESIUM [Concomitant]
     Route: 048
  16. K-DUR 10 [Concomitant]
     Route: 048
  17. DEPO-PROVERA [Concomitant]
  18. MAGNESIUM SULFATE [Concomitant]
     Route: 041
  19. PLATELETS [Concomitant]
     Dates: start: 20051114
  20. NEUPOGEN [Concomitant]
  21. LOVENOX [Concomitant]
  22. CYCLOPHOSPHAMIDE [Concomitant]
     Dates: start: 20051102, end: 20051103
  23. IDARUBICIN HCL [Concomitant]
     Dates: start: 20050522
  24. FAMVIR [Concomitant]
     Dates: start: 20051101
  25. MEROPENEM [Concomitant]
     Dates: start: 20051101
  26. AMICAR [Concomitant]
     Dates: start: 20051124
  27. VALTREX [Concomitant]
     Dates: start: 20050901
  28. CYTOXAN [Concomitant]
     Dates: start: 20051001
  29. BLOOD CELLS, PACKED HUMAN [Concomitant]
  30. TYLENOL [Concomitant]
  31. ARA-C [Concomitant]
     Dates: start: 20050522
  32. LEVAQUIN [Concomitant]
     Dates: start: 20050901
  33. TUMS [Concomitant]
  34. METHOTREXATE SODIUM [Concomitant]
  35. OCTREOTIDE ACETATE [Concomitant]
     Dates: end: 20051213
  36. KEPIVANCE [Concomitant]
  37. ZYPREXA [Concomitant]
     Route: 060
  38. LASIX [Concomitant]
  39. TPN [Concomitant]

REACTIONS (4)
  - APLASIA PURE RED CELL [None]
  - BACTERIA STOOL IDENTIFIED [None]
  - FUNGUS CULTURE POSITIVE [None]
  - HOSPITALISATION [None]
